FAERS Safety Report 13617978 (Version 2)
Quarter: 2017Q4

REPORT INFORMATION
  Report Type: Other
  Country: FR (occurrence: FR)
  Receive Date: 20170606
  Receipt Date: 20171010
  Transmission Date: 20180320
  Serious: Yes (Other)
  Sender: FDA-Public Use
  Company Number: FR-CELLTRION HEALTHCARE HUNGARY KFT-2017FR007185

PATIENT

DRUGS (2)
  1. INFLECTRA [Suspect]
     Active Substance: INFLIXIMAB-DYYB
     Indication: CROHN^S DISEASE
     Dosage: 5 MG/KG, ONCE IN 8 WEEKS
     Route: 042
     Dates: start: 20170203
  2. IMUREL                             /00001501/ [Suspect]
     Active Substance: AZATHIOPRINE SODIUM
     Indication: CROHN^S DISEASE
     Dosage: UNK
     Route: 065
     Dates: start: 201512

REACTIONS (2)
  - Psoriasis [Not Recovered/Not Resolved]
  - Alopecia [Not Recovered/Not Resolved]

NARRATIVE: CASE EVENT DATE: 20170415
